FAERS Safety Report 7399336-4 (Version None)
Quarter: 2011Q2

REPORT INFORMATION
  Report Type: 
  Country: None (occurrence: None)
  Receive Date: 20110407
  Receipt Date: 20110321
  Transmission Date: 20111010
  Serious: Yes (Hospitalization)
  Sender: FDA-Public Use
  Company Number: US-SHIRE-ALL1-2010-06375

PATIENT
  Sex: Male
  Weight: 125.17 kg

DRUGS (2)
  1. UNSPECIFIED BLOOD THINNERS [Concomitant]
     Indication: ANTICOAGULANT THERAPY
     Dosage: UNK, UNKNOWN
     Route: 065
     Dates: end: 20100901
  2. FOSRENOL [Suspect]
     Indication: HYPERPHOSPHATAEMIA
     Dosage: 500 MG, 3X/DAY:TID
     Route: 048
     Dates: start: 20090902, end: 20100920

REACTIONS (14)
  - CHOLECYSTITIS INFECTIVE [None]
  - VOMITING [None]
  - ARTERIOVENOUS FISTULA THROMBOSIS [None]
  - BLOOD COUNT ABNORMAL [None]
  - WEIGHT DECREASED [None]
  - PNEUMONIA [None]
  - NAUSEA [None]
  - GASTROINTESTINAL INFLAMMATION [None]
  - PULMONARY OEDEMA [None]
  - BILE DUCT STONE [None]
  - PANCREATITIS [None]
  - B-CELL LYMPHOMA [None]
  - ENTEROCOCCAL INFECTION [None]
  - JAUNDICE [None]
